FAERS Safety Report 4383268-X (Version None)
Quarter: 2004Q2

REPORT INFORMATION
  Report Type: 
  Country: None (occurrence: None)
  Receive Date: 20040618
  Receipt Date: 20040527
  Transmission Date: 20050107
  Serious: Yes (Life-Threatening, Hospitalization)
  Sender: FDA-Public Use
  Company Number: S04-SWI-02501-01

PATIENT
  Age: 35 Year
  Sex: Male

DRUGS (2)
  1. CIPRALEX (ESCITALOPRAM) [Suspect]
     Indication: STRESS SYMPTOMS
     Dosage: 5 MG QD PO
     Route: 048
     Dates: start: 20040414, end: 20040525
  2. CIPRALEX (ESCITALOPRAM) [Suspect]
     Indication: STRESS SYMPTOMS
     Dosage: 10 MG QD PO
     Route: 048
     Dates: start: 20040408, end: 20040413

REACTIONS (2)
  - ANAEMIA [None]
  - THROMBOCYTOPENIA [None]
